FAERS Safety Report 8922594 (Version 2)
Quarter: 2012Q4

REPORT INFORMATION
  Report Type: 
  Country: US (occurrence: US)
  Receive Date: 20121123
  Receipt Date: 20121203
  Transmission Date: 20130627
  Serious: Yes (Other)
  Sender: FDA-Public Use
  Company Number: PHEH2012US022668

PATIENT
  Sex: Female

DRUGS (10)
  1. DIOVAN HCT [Suspect]
  2. LISINOPRIL+HYDROCHLOROTHIAZIDE [Suspect]
  3. METFORMIN [Concomitant]
  4. MULTIVITAMINS [Concomitant]
  5. SERTRALINE [Concomitant]
  6. BUPROPION XL [Concomitant]
  7. SIMVASTATIN [Concomitant]
  8. DOXEPIN [Concomitant]
  9. MIRTAZAPINE [Concomitant]
  10. MELATONIN [Concomitant]
     Dosage: 5 mg, QD every night

REACTIONS (8)
  - Convulsion [Unknown]
  - Cerebrovascular accident [Unknown]
  - Vascular dementia [Unknown]
  - Brain injury [Unknown]
  - Depression [Unknown]
  - Spinal disorder [Unknown]
  - Joint injury [Unknown]
  - Migraine [Unknown]
